FAERS Safety Report 11981520 (Version 1)
Quarter: 2016Q1

REPORT INFORMATION
  Report Type: Report from Study
  Country: US (occurrence: US)
  Receive Date: 20160130
  Receipt Date: 20160130
  Transmission Date: 20160526
  Serious: Yes (Hospitalization, Other)
  Sender: FDA-Public Use
  Company Number: US-CORCEPT THERAPEUTICS INC.-US-2015CRT000359

PATIENT

DRUGS (3)
  1. KORLYM [Suspect]
     Active Substance: MIFEPRISTONE
     Dosage: 2 MG, QD
     Route: 048
     Dates: start: 201410, end: 201504
  2. KORLYM [Suspect]
     Active Substance: MIFEPRISTONE
     Dosage: 4 DF, QD
     Route: 048
     Dates: start: 201504
  3. KORLYM [Suspect]
     Active Substance: MIFEPRISTONE
     Indication: CUSHING^S SYNDROME
     Dosage: 1 DF, QD
     Route: 048
     Dates: start: 20130910, end: 201410

REACTIONS (4)
  - Impaired healing [Unknown]
  - Pneumonia [Not Recovered/Not Resolved]
  - Surgery [Unknown]
  - Gallbladder operation [Unknown]

NARRATIVE: CASE EVENT DATE: 20141229
